FAERS Safety Report 21465175 (Version 1)
Quarter: 2022Q4

REPORT INFORMATION
  Report Type: Spontaneous
  Country: JP (occurrence: JP)
  Receive Date: 20221017
  Receipt Date: 20221017
  Transmission Date: 20230113
  Serious: Yes (Other)
  Sender: FDA-Public Use
  Company Number: JP-NOVOPROD-962713

PATIENT
  Age: 18 Year
  Sex: Female

DRUGS (4)
  1. TRESIBA [Suspect]
     Active Substance: INSULIN DEGLUDEC
     Indication: Type 1 diabetes mellitus
     Dosage: 20 IU, QD
     Route: 058
  2. TRESIBA [Suspect]
     Active Substance: INSULIN DEGLUDEC
     Dosage: 18 IU
  3. NOVORAPID [Suspect]
     Active Substance: INSULIN ASPART
     Indication: Type 1 diabetes mellitus
     Dosage: TOTAL 4.8 IU QD ( 1.4 IU IN THE MORNING, 1.9 IU IN THE AFTERNOON, AND 1.5 IU IN THE EVENING)
     Route: 058
  4. NOVORAPID [Suspect]
     Active Substance: INSULIN ASPART
     Dosage: TOTAL 4.8 IU QD ( 1.4 IU IN THE MORNING, 1.9 IU IN THE AFTERNOON, AND 1.5 IU IN THE EVENING)
     Route: 058
     Dates: start: 20210426

REACTIONS (2)
  - Hypoglycaemia [Recovered/Resolved]
  - Hemiplegia [Not Recovered/Not Resolved]

NARRATIVE: CASE EVENT DATE: 20210420
